FAERS Safety Report 8207284-2 (Version None)
Quarter: 2012Q1

REPORT INFORMATION
  Report Type: 
  Country: None (occurrence: None)
  Receive Date: 20120314
  Receipt Date: 20120305
  Transmission Date: 20120608
  Serious: Yes (Other)
  Sender: FDA-Public Use
  Company Number: US-JNJFOC-20120302748

PATIENT
  Sex: Female
  Weight: 82.1 kg

DRUGS (2)
  1. REMICADE [Suspect]
     Indication: RHEUMATOID ARTHRITIS
     Route: 042
     Dates: start: 20050701
  2. METHOTREXATE [Concomitant]
     Route: 065

REACTIONS (1)
  - WRIST FRACTURE [None]
